FAERS Safety Report 4942920-5 (Version None)
Quarter: 2006Q1

REPORT INFORMATION
  Report Type: 
  Country: None (occurrence: None)
  Receive Date: 20060309
  Receipt Date: 20060228
  Transmission Date: 20060701
  Serious: Yes (Life-Threatening, Hospitalization)
  Sender: FDA-Public Use
  Company Number: 2006-CZ-00814

PATIENT
  Age: 64 Year
  Sex: Male

DRUGS (8)
  1. FUROSEMIDE [Suspect]
     Dosage: 40 MG, 1 IN 1 D, UNKNOWN
  2. SPIRONOLACTONE [Suspect]
     Dosage: 12.5 MG, 1 IN 1 D, UNKNOWN
  3. AMILORIDE HYDROCHLORIDE [Suspect]
     Dosage: 5 MG, 1 IN 1 D, UNKNOWN
  4. LISINOPRIL [Suspect]
     Indication: NEPHROTIC SYNDROME
     Dosage: 10 MG, 1 IN 1 D; ORAL
     Route: 048
  5. ALLOPURINOL [Concomitant]
  6. CETIRIZINE [Concomitant]
  7. SALBUTAMOL [Concomitant]
  8. CLOBETASOL PROPIONATE [Concomitant]

REACTIONS (6)
  - BLOOD POTASSIUM INCREASED [None]
  - DEHYDRATION [None]
  - DIARRHOEA [None]
  - HYPOTENSION [None]
  - RENAL FAILURE ACUTE [None]
  - VOMITING [None]
